FAERS Safety Report 6431161-0 (Version None)
Quarter: 2009Q4

REPORT INFORMATION
  Report Type: 
  Country: None (occurrence: None)
  Receive Date: 20091105
  Receipt Date: 20091105
  Transmission Date: 20100525
  Serious: Yes (Hospitalization)
  Sender: FDA-Public Use
  Company Number: None

PATIENT
  Age: 93 Year
  Sex: Female

DRUGS (2)
  1. VERSED [Suspect]
     Indication: ANAESTHESIA
     Dosage: 2MG X1 IV
     Route: 042
     Dates: start: 20090630
  2. PROPOFOL [Suspect]
     Indication: ANAESTHESIA
     Dosage: X1 IV
     Route: 042
     Dates: start: 20090630

REACTIONS (1)
  - CARDIAC ARREST [None]
